FAERS Safety Report 16410638 (Version 1)
Quarter: 2019Q2

REPORT INFORMATION
  Report Type: Spontaneous
  Country: US (occurrence: US)
  Receive Date: 20190610
  Receipt Date: 20190610
  Transmission Date: 20190711
  Serious: Yes (Other)
  Sender: FDA-Public Use
  Company Number: US-PFIZER INC-2019239588

PATIENT
  Age: 70 Year
  Sex: Female
  Weight: 75.28 kg

DRUGS (2)
  1. NEOSPORINE [Suspect]
     Active Substance: GRAMICIDIN\NEOMYCIN SULFATE\POLYMYXIN B SULFATE
     Dosage: UNK
  2. IBRANCE [Suspect]
     Active Substance: PALBOCICLIB
     Indication: BREAST CANCER FEMALE
     Dosage: 100 MG, CYCLIC(ONCE PER DAY FOR 21 DAYS AND OFF FOR 7 DAYS)
     Route: 048
     Dates: start: 2016

REACTIONS (3)
  - Purpura [Not Recovered/Not Resolved]
  - Rash vesicular [Not Recovered/Not Resolved]
  - Rash pruritic [Not Recovered/Not Resolved]

NARRATIVE: CASE EVENT DATE: 201903
